FAERS Safety Report 19313187 (Version 1)
Quarter: 2021Q2

REPORT INFORMATION
  Report Type: Spontaneous
  Country: US (occurrence: US)
  Receive Date: 20210526
  Receipt Date: 20210526
  Transmission Date: 20210717
  Serious: Yes (Hospitalization)
  Sender: FDA-Public Use
  Company Number: None

PATIENT
  Sex: Female

DRUGS (11)
  1. NUTROPIN AQ [Suspect]
     Active Substance: SOMATROPIN
     Indication: RENAL DYSPLASIA
     Route: 058
  2. MELATONIN [Concomitant]
     Active Substance: MELATONIN
  3. CALCITRIOL. [Concomitant]
     Active Substance: CALCITRIOL
  4. CINACALCET. [Concomitant]
     Active Substance: CINACALCET
  5. CEFEPIME [Concomitant]
     Active Substance: CEFEPIME HYDROCHLORIDE
  6. VITAMIN D3 [Concomitant]
     Active Substance: CHOLECALCIFEROL
  7. EPOGEN [Concomitant]
     Active Substance: ERYTHROPOIETIN
  8. FERROUS SULF [Concomitant]
     Active Substance: FERROUS SULFATE
  9. RETACRIT [Concomitant]
     Active Substance: EPOETIN ALFA-EPBX
  10. SEVERLAMER [Concomitant]
  11. SOD CITRATE [Concomitant]

REACTIONS (2)
  - Hospitalisation [None]
  - Product dose omission issue [None]
